FAERS Safety Report 14893011 (Version 1)
Quarter: 2018Q2

REPORT INFORMATION
  Report Type: Report from Study
  Country: CA (occurrence: CA)
  Receive Date: 20180514
  Receipt Date: 20180514
  Transmission Date: 20180711
  Serious: Yes (Other)
  Sender: FDA-Public Use
  Company Number: CA-BAYER-2018-075330

PATIENT
  Age: 66 Year
  Sex: Female

DRUGS (6)
  1. ADEMPAS [Suspect]
     Active Substance: RIOCIGUAT
     Indication: PULMONARY HYPERTENSION
     Dosage: UNK
     Dates: start: 20180227
  2. ADEMPAS [Suspect]
     Active Substance: RIOCIGUAT
     Indication: PULMONARY HYPERTENSION
     Dosage: 1.5 MG, UNK
  3. ADEMPAS [Suspect]
     Active Substance: RIOCIGUAT
     Indication: PULMONARY HYPERTENSION
     Dosage: 1.0 MG, TID
  4. COVERSYL [Concomitant]
     Active Substance: PERINDOPRIL
     Indication: HYPERTENSION
     Dosage: UNK
  5. COVERSYL [Concomitant]
     Active Substance: PERINDOPRIL
     Indication: HYPERTENSION
     Dosage: 4.0 MG, UNK
  6. ADEMPAS [Suspect]
     Active Substance: RIOCIGUAT
     Indication: PULMONARY HYPERTENSION
     Dosage: 2.0 MG, TID
     Route: 048

REACTIONS (18)
  - Loss of consciousness [Recovering/Resolving]
  - Dizziness [Recovering/Resolving]
  - Fall [Unknown]
  - Blood pressure diastolic decreased [Unknown]
  - Dizziness postural [Not Recovered/Not Resolved]
  - Laceration [Unknown]
  - Mobility decreased [None]
  - Blood pressure diastolic decreased [Unknown]
  - Contusion [Unknown]
  - Blood pressure diastolic decreased [Unknown]
  - Haematoma [Unknown]
  - Dizziness [Unknown]
  - Blood pressure fluctuation [Not Recovered/Not Resolved]
  - Epistaxis [Recovered/Resolved]
  - Blood pressure diastolic decreased [Not Recovered/Not Resolved]
  - Fall [None]
  - Dyspnoea [Not Recovered/Not Resolved]
  - Dizziness postural [Unknown]

NARRATIVE: CASE EVENT DATE: 20180414
